FAERS Safety Report 8021188-X (Version None)
Quarter: 2011Q4

REPORT INFORMATION
  Report Type: 
  Country: None (occurrence: None)
  Receive Date: 20111230
  Receipt Date: 20111230
  Transmission Date: 20120403
  Serious: No
  Sender: FDA-Public Use
  Company Number: None

PATIENT
  Sex: Female
  Weight: 80 kg

DRUGS (1)
  1. INTRON A [Suspect]
     Dosage: 335 MU
     Dates: end: 20111209

REACTIONS (1)
  - BLOOD CREATINE PHOSPHOKINASE [None]
